FAERS Safety Report 5090410-4 (Version None)
Quarter: 2006Q3

REPORT INFORMATION
  Report Type: 
  Country: None (occurrence: None)
  Receive Date: 20060828
  Receipt Date: 20060118
  Transmission Date: 20061208
  Serious: No
  Sender: FDA-Public Use
  Company Number: US-GLAXOSMITHKLINE-A0590128A

PATIENT
  Age: 54 Year
  Sex: Female
  Weight: 50 kg

DRUGS (3)
  1. WELLBUTRIN XL [Suspect]
     Indication: DEPRESSION
     Dosage: 150MG PER DAY
     Route: 048
     Dates: start: 20051201, end: 20060220
  2. FOSAMAX [Concomitant]
  3. ESTROGEN + PROGESTERONE [Concomitant]

REACTIONS (1)
  - TINNITUS [None]
